FAERS Safety Report 4885964-4 (Version None)
Quarter: 2006Q1

REPORT INFORMATION
  Report Type: 
  Country: None (occurrence: None)
  Receive Date: 20060117
  Receipt Date: 20060111
  Transmission Date: 20060701
  Serious: Yes (Life-Threatening, Hospitalization)
  Sender: FDA-Public Use
  Company Number: 2005162866

PATIENT
  Age: 83 Year
  Sex: Female

DRUGS (6)
  1. NORVASC [Suspect]
     Indication: HYPERTENSION
     Dosage: 5 MG (5 MG, 1 IN 1 D), ORAL
     Route: 048
     Dates: start: 20050806, end: 20051003
  2. OLMETEC (OLMESARTAN) [Suspect]
     Indication: HYPERTENSION
     Dosage: 10 MG (10 MG, 1 IN 1 D), ORAL
     Route: 048
     Dates: start: 20050806, end: 20051003
  3. PRAVASTATIN [Concomitant]
  4. PLATIBIT (ALFACALCIDOL) [Concomitant]
  5. SENNOSIDE A+B CALCIUM (SENNOSIDE A+B CALCIUM) [Concomitant]
  6. RASANEN (UBIDECARENONE) [Concomitant]

REACTIONS (11)
  - AORTIC VALVE STENOSIS [None]
  - ATRIOVENTRICULAR BLOCK FIRST DEGREE [None]
  - ATRIOVENTRICULAR BLOCK SECOND DEGREE [None]
  - BIFASCICULAR BLOCK [None]
  - BRADYCARDIA [None]
  - CONDITION AGGRAVATED [None]
  - DEPRESSED LEVEL OF CONSCIOUSNESS [None]
  - LOSS OF CONSCIOUSNESS [None]
  - PALLOR [None]
  - RESPIRATION ABNORMAL [None]
  - SOMNOLENCE [None]
